FAERS Safety Report 10228554 (Version 1)
Quarter: 2014Q2

REPORT INFORMATION
  Report Type: Report from Study
  Country: DE (occurrence: DE)
  Receive Date: 20140610
  Receipt Date: 20140610
  Transmission Date: 20141212
  Serious: Yes (Other)
  Sender: FDA-Public Use
  Company Number: DE-BRISTOL-MYERS SQUIBB COMPANY-20882767

PATIENT
  Sex: 0

DRUGS (1)
  1. DASATINIB [Suspect]
     Indication: CHRONIC MYELOID LEUKAEMIA

REACTIONS (5)
  - Pancreatitis [Unknown]
  - Electrocardiogram QT prolonged [Unknown]
  - Pleural effusion [Unknown]
  - Fluid retention [Unknown]
  - Gastrointestinal disorder [Unknown]
